FAERS Safety Report 7354623-0 (Version None)
Quarter: 2011Q1

REPORT INFORMATION
  Report Type: 
  Country: None (occurrence: None)
  Receive Date: 20110316
  Receipt Date: 20110314
  Transmission Date: 20110831
  Serious: No
  Sender: FDA-Public Use
  Company Number: US-PFIZER INC-2011055716

PATIENT
  Sex: Female

DRUGS (2)
  1. NORVASC [Suspect]
     Dosage: 5 MG, UNK
  2. CLONIDINE HYDROCHLORIDE [Suspect]
     Dosage: UNK

REACTIONS (3)
  - DYSPNOEA [None]
  - GINGIVAL PAIN [None]
  - MUSCLE SPASMS [None]
